FAERS Safety Report 24526308 (Version 2)
Quarter: 2024Q4

REPORT INFORMATION
  Report Type: Spontaneous
  Country: JP (occurrence: JP)
  Receive Date: 20241021
  Receipt Date: 20241222
  Transmission Date: 20250115
  Serious: Yes (Other)
  Sender: NOVARTIS
  Company Number: JP-002147023-NVSJ2024JP012334

PATIENT
  Age: 74 Year
  Sex: Female

DRUGS (6)
  1. CLOFAZIMINE [Suspect]
     Active Substance: CLOFAZIMINE
     Indication: Atypical mycobacterial infection
     Dosage: 100 MG
     Route: 048
     Dates: start: 20240607, end: 20240729
  2. AZITHROMYCIN [Concomitant]
     Active Substance: AZITHROMYCIN
     Indication: Atypical mycobacterial infection
     Dosage: 250 MG
     Route: 048
     Dates: start: 20210413
  3. SITAFLOXACIN [Concomitant]
     Active Substance: SITAFLOXACIN
     Indication: Atypical mycobacterial infection
     Dosage: 50 MG
     Route: 048
     Dates: start: 20210507
  4. FAROPENEM SODIUM [Concomitant]
     Active Substance: FAROPENEM SODIUM
     Indication: Product used for unknown indication
     Dosage: 400 MG
     Route: 048
     Dates: start: 20210507, end: 20240602
  5. FAROPENEM SODIUM [Concomitant]
     Active Substance: FAROPENEM SODIUM
     Dosage: 400 MG
     Route: 048
     Dates: start: 20240930
  6. CILASTATIN SODIUM\IMIPENEM [Concomitant]
     Active Substance: CILASTATIN SODIUM\IMIPENEM
     Indication: Product used for unknown indication
     Dosage: 0.5 G, Q12H
     Route: 042
     Dates: start: 20240603, end: 20240627

REACTIONS (2)
  - Renal impairment [Recovering/Resolving]
  - Blood pressure decreased [Unknown]

NARRATIVE: CASE EVENT DATE: 20240718
